FAERS Safety Report 13918217 (Version 7)
Quarter: 2021Q4

REPORT INFORMATION
  Report Type: Spontaneous
  Country: US (occurrence: US)
  Receive Date: 20170829
  Receipt Date: 20211210
  Transmission Date: 20220303
  Serious: Yes (Other)
  Sender: FDA-Public Use
  Company Number: US-SA-2017SA040537

PATIENT
  Age: 48 Year
  Sex: Female

DRUGS (5)
  1. FABRAZYME [Suspect]
     Active Substance: AGALSIDASE BETA
     Indication: Fabry^s disease
     Dosage: 110 MG,QOW
     Route: 041
     Dates: start: 201608
  2. FABRAZYME [Suspect]
     Active Substance: AGALSIDASE BETA
     Dosage: 110 MG,QOW
     Route: 041
  3. FABRAZYME [Suspect]
     Active Substance: AGALSIDASE BETA
     Dosage: 80 MG, QOW
     Route: 042
     Dates: start: 20190429
  4. FABRAZYME [Suspect]
     Active Substance: AGALSIDASE BETA
     Dosage: 75 MG, QOW
     Route: 041
     Dates: start: 20200327, end: 20201014
  5. FABRAZYME [Suspect]
     Active Substance: AGALSIDASE BETA
     Dosage: 75 MG, QOW
     Route: 041
     Dates: start: 20201110

REACTIONS (6)
  - Central venous catheterisation [Unknown]
  - Weight increased [Unknown]
  - Weight fluctuation [Unknown]
  - COVID-19 [Unknown]
  - Fatigue [Unknown]
  - Ill-defined disorder [Unknown]

NARRATIVE: CASE EVENT DATE: 20210510
